FAERS Safety Report 18717760 (Version 1)
Quarter: 2021Q1

REPORT INFORMATION
  Report Type: Spontaneous
  Country: US (occurrence: US)
  Receive Date: 20210108
  Receipt Date: 20210108
  Transmission Date: 20210419
  Serious: Yes (Other)
  Sender: FDA-Public Use
  Company Number: US-PURDUE-USA-2021-0195504

PATIENT
  Sex: Female

DRUGS (1)
  1. COLACE [Suspect]
     Active Substance: DOCUSATE SODIUM
     Indication: DIVERTICULUM
     Dosage: 3 CAPSL, NOCTE
     Route: 048

REACTIONS (3)
  - Abdominal discomfort [Unknown]
  - Surgery [Unknown]
  - Pain [Unknown]
